FAERS Safety Report 6069790-9 (Version None)
Quarter: 2009Q1

REPORT INFORMATION
  Report Type: 
  Country: None (occurrence: None)
  Receive Date: 20090209
  Receipt Date: 20090127
  Transmission Date: 20090719
  Serious: Yes (Death)
  Sender: FDA-Public Use
  Company Number: DE-AMGEN-UK330663

PATIENT
  Age: 55 Year
  Sex: Female

DRUGS (9)
  1. KINERET [Suspect]
     Indication: RHEUMATOID ARTHRITIS
     Route: 058
     Dates: start: 20050101, end: 20050301
  2. INFLIXIMAB [Suspect]
     Route: 065
     Dates: start: 20020501, end: 20031201
  3. INFLIXIMAB [Suspect]
     Dates: start: 20031201, end: 20041101
  4. INFLIXIMAB [Suspect]
     Route: 065
     Dates: start: 20041101, end: 20060201
  5. ETANERCEPT [Suspect]
     Route: 065
     Dates: start: 20061001, end: 20071001
  6. METHOTREXATE SODIUM [Suspect]
     Route: 065
     Dates: start: 20031101, end: 20041101
  7. METHOTREXATE SODIUM [Suspect]
     Route: 065
     Dates: start: 20041101
  8. RITUXIMAB [Suspect]
     Route: 065
     Dates: start: 20071001, end: 20071101
  9. ADALIMUMAB [Concomitant]
     Route: 065
     Dates: start: 20060201, end: 20061001

REACTIONS (3)
  - FUNGAL SEPSIS [None]
  - MULTI-ORGAN FAILURE [None]
  - SEPTIC SHOCK [None]
